FAERS Safety Report 5114830-4 (Version None)
Quarter: 2006Q3

REPORT INFORMATION
  Report Type: 
  Country: None (occurrence: None)
  Receive Date: 20060926
  Receipt Date: 20060901
  Transmission Date: 20061208
  Serious: Yes (Other)
  Sender: FDA-Public Use
  Company Number: US-BAYER-200613781BCC

PATIENT
  Sex: Female

DRUGS (1)
  1. ASPIRIN [Suspect]
     Indication: TOOTHACHE
     Route: 048

REACTIONS (3)
  - BLOOD DISORDER [None]
  - BLOOD VISCOSITY INCREASED [None]
  - CEREBROVASCULAR ACCIDENT [None]
